FAERS Safety Report 9597263 (Version 1)
Quarter: 2013Q4

REPORT INFORMATION
  Report Type: Spontaneous
  Country: US (occurrence: US)
  Receive Date: 20131004
  Receipt Date: 20131004
  Transmission Date: 20140711
  Serious: No
  Sender: FDA-Public Use
  Company Number: US-AMGEN-USASP2013018129

PATIENT
  Age: 49 Year
  Sex: Female
  Weight: 90.7 kg

DRUGS (17)
  1. ENBREL [Suspect]
     Indication: PSORIASIS
     Dosage: UNK
     Dates: start: 20121118, end: 20130218
  2. ACYCLOVIR                          /00587301/ [Concomitant]
     Dosage: UNK
  3. CALCIUM [Concomitant]
     Dosage: UNK
  4. FISH OIL [Concomitant]
     Dosage: UNK
  5. LEVOTHYROXINE [Concomitant]
     Dosage: UNK
  6. NIACINAMIDE [Concomitant]
     Dosage: UNK
  7. PROBIOTIC                          /06395501/ [Concomitant]
     Dosage: UNK
  8. SIMVASTATIN [Concomitant]
     Dosage: UNK
  9. UBIQUINOL [Concomitant]
     Dosage: UNK
  10. VITAMIN C                          /00008001/ [Concomitant]
     Dosage: UNK
  11. VITAMIN D                          /00107901/ [Concomitant]
     Dosage: UNK
  12. ZINC [Concomitant]
     Dosage: UNK
  13. TESTOSTERONE [Concomitant]
     Dosage: UNK
  14. KAPREX AI [Concomitant]
     Dosage: UNK
  15. PROTEIN SUPPLEMENTS [Concomitant]
     Dosage: UNK
  16. TRANQUIL                           /00017001/ [Concomitant]
     Dosage: UNK
  17. LYSINE [Concomitant]

REACTIONS (1)
  - Drug ineffective [Unknown]
